FAERS Safety Report 4703246-8 (Version None)
Quarter: 2005Q2

REPORT INFORMATION
  Report Type: 
  Country: None (occurrence: None)
  Receive Date: 20050629
  Receipt Date: 20041022
  Transmission Date: 20051028
  Serious: Yes (Disabling)
  Sender: FDA-Public Use
  Company Number: DEWYE131822OCT04

PATIENT
  Sex: Female
  Weight: 80 kg

DRUGS (5)
  1. ENBREL [Suspect]
     Indication: RHEUMATOID ARTHRITIS
     Route: 058
     Dates: start: 20040906, end: 20041001
  2. ASCORBIC ACID [Concomitant]
     Indication: TUBERCULOSIS PROPHYLAXIS
     Dosage: 300 MG
     Route: 048
     Dates: start: 20040804, end: 20041021
  3. METOPROLOL SUCCINATE [Concomitant]
     Dosage: 95 MG
     Route: 048
     Dates: start: 20030101
  4. PANTOPRAZOLE SODIUM [Concomitant]
     Dosage: 40 MG
     Route: 048
     Dates: start: 20030101
  5. CALCIUM CARBONATE [Concomitant]
     Dosage: 1000 MG
     Route: 048
     Dates: start: 20010101

REACTIONS (1)
  - BRONCHIAL OBSTRUCTION [None]
